FAERS Safety Report 6765976-6 (Version None)
Quarter: 2010Q2

REPORT INFORMATION
  Report Type: 
  Country: None (occurrence: None)
  Receive Date: 20100611
  Receipt Date: 20100607
  Transmission Date: 20101027
  Serious: Yes (Other)
  Sender: FDA-Public Use
  Company Number: US-TEVA-237095USA

PATIENT
  Age: 87 Year
  Sex: Male

DRUGS (1)
  1. NASAREL [Suspect]
     Indication: RHINITIS ALLERGIC
     Route: 045

REACTIONS (1)
  - PSYCHOTIC DISORDER [None]
